FAERS Safety Report 21676395 (Version 2)
Quarter: 2022Q4

REPORT INFORMATION
  Report Type: Spontaneous
  Country: GB (occurrence: GB)
  Receive Date: 20221202
  Receipt Date: 20221216
  Transmission Date: 20230113
  Serious: Yes (Death)
  Sender: FDA-Public Use
  Company Number: GB-BAYER-2022P025063

PATIENT
  Age: 5 Decade
  Sex: Male

DRUGS (5)
  1. VITRAKVI [Suspect]
     Active Substance: LAROTRECTINIB
     Indication: Pelvic neoplasm
     Dosage: UNK
     Dates: start: 20210910
  2. VITRAKVI [Suspect]
     Active Substance: LAROTRECTINIB
     Indication: Metastases to lung
  3. VITRAKVI [Suspect]
     Active Substance: LAROTRECTINIB
     Indication: Metastases to bone
  4. VITRAKVI [Suspect]
     Active Substance: LAROTRECTINIB
     Indication: Spindle cell sarcoma
  5. VITRAKVI [Suspect]
     Active Substance: LAROTRECTINIB
     Indication: Spindle cell sarcoma

REACTIONS (1)
  - Lung disorder [Fatal]
